FAERS Safety Report 15246379 (Version 1)
Quarter: 2018Q3

REPORT INFORMATION
  Report Type: Spontaneous
  Country: US (occurrence: US)
  Receive Date: 20180806
  Receipt Date: 20180806
  Transmission Date: 20181010
  Serious: Yes (Other)
  Sender: FDA-Public Use
  Company Number: US-SA-2018SA210801

PATIENT
  Sex: Male

DRUGS (1)
  1. AUBAGIO [Suspect]
     Active Substance: TERIFLUNOMIDE
     Indication: MULTIPLE SCLEROSIS
     Dosage: UNK

REACTIONS (9)
  - Pollakiuria [Unknown]
  - Hot flush [Unknown]
  - Depression [Unknown]
  - Fatigue [Unknown]
  - Mobility decreased [Unknown]
  - Cognitive disorder [Unknown]
  - Tongue movement disturbance [Unknown]
  - Prostate cancer [Not Recovered/Not Resolved]
  - Chills [Unknown]
